FAERS Safety Report 15675882 (Version 1)
Quarter: 2018Q4

REPORT INFORMATION
  Report Type: Spontaneous
  Country: US (occurrence: US)
  Receive Date: 20181130
  Receipt Date: 20181130
  Transmission Date: 20190205
  Serious: Yes (Other)
  Sender: FDA-Public Use
  Company Number: US-HQ SPECIALTY-US-2018INT000243

PATIENT

DRUGS (8)
  1. ALBUTEROL                          /00139501/ [Concomitant]
     Active Substance: ALBUTEROL
     Indication: PRODUCT USED FOR UNKNOWN INDICATION
     Dosage: UNK
  2. RADIOTHERAPY [Suspect]
     Active Substance: RADIATION THERAPY
     Indication: NON-SMALL CELL LUNG CANCER STAGE IIIB
     Dosage: DEFINITIVE RADIATION DOSE OF 60 GY IN 30 FRACTIONS
  3. CISPLATIN. [Suspect]
     Active Substance: CISPLATIN
     Indication: NON-SMALL CELL LUNG CANCER STAGE IIIB
     Dosage: 50 MG/M2, (DAY 1,8, 29 AND 36)  FIRST CYCLE INFUSION
     Route: 042
  4. RADIOTHERAPY [Suspect]
     Active Substance: RADIATION THERAPY
     Dosage: 57 GY OR 95% OF THE PRESCRIBED DOSE
     Route: 065
  5. CISPLATIN. [Suspect]
     Active Substance: CISPLATIN
     Dosage: ONE ADDITIONAL CYCLE (TOTAL OF TWO CYCLES)
     Route: 042
  6. ETOPOSIDE. [Suspect]
     Active Substance: ETOPOSIDE
     Indication: NON-SMALL CELL LUNG CANCER STAGE IIIB
     Dosage: 50 MG/M2, QD (FIRST CYCLE) DAY 1,5, 29 AND 33
     Route: 065
  7. AMLODIPINE [Concomitant]
     Active Substance: AMLODIPINE BESYLATE
     Indication: PRODUCT USED FOR UNKNOWN INDICATION
     Dosage: UNK
  8. ETOPOSIDE. [Suspect]
     Active Substance: ETOPOSIDE
     Dosage: ONE ADDITIONAL CYCLE (TOTAL OF TWO CYCLES)
     Route: 065

REACTIONS (1)
  - Superior vena cava syndrome [Recovered/Resolved]
